FAERS Safety Report 9397771 (Version 1)
Quarter: 2013Q3

REPORT INFORMATION
  Report Type: Spontaneous
  Country: BE (occurrence: BE)
  Receive Date: 20130712
  Receipt Date: 20130712
  Transmission Date: 20140515
  Serious: Yes (Other)
  Sender: FDA-Public Use
  Company Number: BE-MYLANLABS-2013S1014995

PATIENT
  Sex: 0

DRUGS (1)
  1. REMIFENTANIL [Suspect]
     Route: 064

REACTIONS (3)
  - Bradycardia foetal [Recovered/Resolved]
  - Hypotonia [Recovered/Resolved]
  - Foetal exposure during pregnancy [Recovered/Resolved]
